FAERS Safety Report 16731695 (Version 3)
Quarter: 2019Q4

REPORT INFORMATION
  Report Type: Report from Study
  Country: US (occurrence: US)
  Receive Date: 20190822
  Receipt Date: 20191119
  Transmission Date: 20200122
  Serious: No
  Sender: FDA-Public Use
  Company Number: US-SA-2019SA223664

PATIENT
  Age: 36 Year
  Sex: Female

DRUGS (31)
  1. DUPILUMAB [Suspect]
     Active Substance: DUPILUMAB
     Indication: ASTHMA
     Dosage: 300 MG, QOW
     Route: 058
     Dates: start: 20190701
  2. ALBUTEROL SULFATE. [Concomitant]
     Active Substance: ALBUTEROL SULFATE
  3. VIIBRYD [Concomitant]
     Active Substance: VILAZODONE HYDROCHLORIDE
  4. VISTARIL [HYDROXYZINE HYDROCHLORIDE] [Concomitant]
  5. CARAFATE [Concomitant]
     Active Substance: SUCRALFATE
  6. LAMICTAL [Concomitant]
     Active Substance: LAMOTRIGINE
  7. PROVIGIL [Concomitant]
     Active Substance: MODAFINIL
  8. PREGABALIN. [Concomitant]
     Active Substance: PREGABALIN
  9. BREO ELLIPTA [Concomitant]
     Active Substance: FLUTICASONE FUROATE\VILANTEROL TRIFENATATE
  10. LYRICA [Concomitant]
     Active Substance: PREGABALIN
  11. GABAPENTIN. [Concomitant]
     Active Substance: GABAPENTIN
  12. ADVAIR HFA [Concomitant]
     Active Substance: FLUTICASONE PROPIONATE\SALMETEROL XINAFOATE
  13. PATANOL [Concomitant]
     Active Substance: OLOPATADINE HYDROCHLORIDE
  14. CLINDAMYCIN/BENZOYL PEROXIDE [Concomitant]
     Active Substance: BENZOYL PEROXIDE\CLINDAMYCIN PHOSPHATE
  15. SPIRIVA [Concomitant]
     Active Substance: TIOTROPIUM BROMIDE MONOHYDRATE
  16. VITAMIN D3 [Concomitant]
     Active Substance: CHOLECALCIFEROL
  17. QUETIAPINE FUMARATE. [Concomitant]
     Active Substance: QUETIAPINE FUMARATE
  18. RANITIDINE. [Concomitant]
     Active Substance: RANITIDINE
  19. TRAZODONE [Concomitant]
     Active Substance: TRAZODONE HYDROCHLORIDE
  20. VRAYLAR [Concomitant]
     Active Substance: CARIPRAZINE
  21. ESOMEPRAZOLE MAGNESIUM. [Concomitant]
     Active Substance: ESOMEPRAZOLE MAGNESIUM
  22. CORLANOR [Concomitant]
     Active Substance: IVABRADINE HYDROCHLORIDE
  23. BUSPIRONE [Concomitant]
     Active Substance: BUSPIRONE HYDROCHLORIDE
  24. SUCRALFATE. [Concomitant]
     Active Substance: SUCRALFATE
  25. ATIVAN [Concomitant]
     Active Substance: LORAZEPAM
  26. DYMISTA [Concomitant]
     Active Substance: AZELASTINE HYDROCHLORIDE\FLUTICASONE PROPIONATE
  27. METFORMIN [Concomitant]
     Active Substance: METFORMIN HYDROCHLORIDE
  28. EMGALITY [Concomitant]
     Active Substance: GALCANEZUMAB-GNLM
  29. SULFACETAMIDE SODIUM. [Concomitant]
     Active Substance: SULFACETAMIDE SODIUM
  30. BACLOFEN. [Concomitant]
     Active Substance: BACLOFEN
  31. PROAIR HFA [Concomitant]
     Active Substance: ALBUTEROL SULFATE

REACTIONS (9)
  - Injection site erythema [Unknown]
  - Injection site warmth [Unknown]
  - Injection site pain [Unknown]
  - Sinusitis [Unknown]
  - Pyrexia [Unknown]
  - Injection site bruising [Unknown]
  - Viral infection [Unknown]
  - Cough [Unknown]
  - Injection site rash [Unknown]

NARRATIVE: CASE EVENT DATE: 2019
